FAERS Safety Report 7509833-6 (Version None)
Quarter: 2011Q2

REPORT INFORMATION
  Report Type: 
  Country: None (occurrence: None)
  Receive Date: 20110527
  Receipt Date: 20110517
  Transmission Date: 20111010
  Serious: Yes (Death, Hospitalization)
  Sender: FDA-Public Use
  Company Number: A0929225A

PATIENT
  Age: 87 Year
  Sex: Female

DRUGS (1)
  1. ARIXTRA [Suspect]
     Dosage: 5MG UNKNOWN
     Route: 065
     Dates: start: 20110412, end: 20110504

REACTIONS (2)
  - DEATH [None]
  - MALAISE [None]
